FAERS Safety Report 5927171-X (Version None)
Quarter: 2008Q4

REPORT INFORMATION
  Report Type: 
  Country: None (occurrence: None)
  Receive Date: 20081022
  Receipt Date: 20081015
  Transmission Date: 20090506
  Serious: Yes (Disabling, Other)
  Sender: FDA-Public Use
  Company Number: JP-PFIZER INC-2008031231

PATIENT
  Sex: Female

DRUGS (3)
  1. XALATAN [Suspect]
     Indication: GLAUCOMA
     Route: 031
     Dates: start: 20010101, end: 20080404
  2. CARTEOLOL HYDROCHLORIDE [Suspect]
     Indication: GLAUCOMA
     Route: 031
     Dates: start: 20010101
  3. DETANTOL [Suspect]
     Indication: GLAUCOMA
     Route: 031
     Dates: start: 20010101

REACTIONS (2)
  - CATARACT OPERATION [None]
  - DYSGEUSIA [None]
